FAERS Safety Report 6564793-X (Version None)
Quarter: 2010Q1

REPORT INFORMATION
  Report Type: 
  Country: None (occurrence: None)
  Receive Date: 20100201
  Receipt Date: 20100120
  Transmission Date: 20100710
  Serious: Yes (Other)
  Sender: FDA-Public Use
  Company Number: DE-PFIZER INC-2010007392

PATIENT
  Age: 35 Year
  Sex: Male

DRUGS (3)
  1. VORICONAZOLE [Suspect]
     Indication: ASPERGILLOSIS
     Dosage: 400 MG, UNK
     Route: 048
     Dates: start: 20090701, end: 20091214
  2. COTRIM DS [Concomitant]
     Indication: PROPHYLAXIS
     Dosage: 960
     Route: 048
     Dates: start: 20091001
  3. PANTOPRAZOL [Concomitant]
     Indication: PROPHYLAXIS AGAINST GASTROINTESTINAL ULCER
     Dosage: 40
     Route: 048
     Dates: start: 20090701

REACTIONS (1)
  - RETINAL VEIN OCCLUSION [None]
